FAERS Safety Report 11235109 (Version 2)
Quarter: 2015Q4

REPORT INFORMATION
  Report Type: Spontaneous
  Country: JP (occurrence: JP)
  Receive Date: 20150702
  Receipt Date: 20151203
  Transmission Date: 20160304
  Serious: Yes (Other)
  Sender: FDA-Public Use
  Company Number: JP-BAYER-2015-365836

PATIENT
  Age: 77 Year
  Sex: Male

DRUGS (1)
  1. BAYASPIRIN [Suspect]
     Active Substance: ASPIRIN
     Indication: PRINZMETAL ANGINA
     Route: 048

REACTIONS (2)
  - Anaemia [None]
  - Gastroenteritis radiation [None]
